FAERS Safety Report 13586485 (Version 1)
Quarter: 2017Q2

REPORT INFORMATION
  Report Type: Report from Study
  Country: US (occurrence: US)
  Receive Date: 20170526
  Receipt Date: 20170526
  Transmission Date: 20170830
  Serious: Yes (Other)
  Sender: FDA-Public Use
  Company Number: US-GILEAD-2017-0273591

PATIENT
  Sex: Male

DRUGS (2)
  1. RIBAVIRIN. [Concomitant]
     Active Substance: RIBAVIRIN
     Indication: CHRONIC HEPATITIS C
     Dosage: UNK
     Route: 065
  2. SOFOSBUVIR [Suspect]
     Active Substance: SOFOSBUVIR
     Indication: CHRONIC HEPATITIS C
     Dosage: 1 UNK, UNK
     Route: 048
     Dates: start: 20170417

REACTIONS (6)
  - Pyrexia [Recovered/Resolved]
  - Cardiac flutter [Not Recovered/Not Resolved]
  - Fear [Not Recovered/Not Resolved]
  - Pain [Not Recovered/Not Resolved]
  - Headache [Recovered/Resolved]
  - Knee operation [Recovered/Resolved]
